FAERS Safety Report 7051634-X (Version None)
Quarter: 2010Q4

REPORT INFORMATION
  Report Type: 
  Country: None (occurrence: None)
  Receive Date: 20101012
  Receipt Date: 20100929
  Transmission Date: 20110411
  Serious: Yes (Death)
  Sender: FDA-Public Use
  Company Number: UTC-001497

PATIENT
  Age: 17 Year
  Sex: Female

DRUGS (3)
  1. REMODULIN [Suspect]
     Indication: PULMONARY ARTERIAL HYPERTENSION
     Dosage: SUBCUTANEOUS
     Route: 058
  2. BOSENTAN(BOSENTAN) [Concomitant]
  3. SILDENAFIL CITRATE [Concomitant]

REACTIONS (1)
  - DEATH [None]
